FAERS Safety Report 5056481-6 (Version None)
Quarter: 2006Q2

REPORT INFORMATION
  Report Type: 
  Country: None (occurrence: None)
  Receive Date: 20060616
  Receipt Date: 20060228
  Transmission Date: 20061013
  Serious: Yes (Hospitalization)
  Sender: FDA-Public Use
  Company Number: 200611908US

PATIENT
  Age: 84 Year
  Sex: Female

DRUGS (4)
  1. LANTUS [Suspect]
     Dosage: 14 IU QAM
  2. OPTICLIK [Suspect]
  3. HUMALOG [Concomitant]
  4. OTHER MEDICATIONS [Concomitant]

REACTIONS (4)
  - AMNESIA [None]
  - BLOOD GLUCOSE INCREASED [None]
  - DYSARTHRIA [None]
  - FEELING ABNORMAL [None]
